FAERS Safety Report 21927203 (Version 2)
Quarter: 2023Q1

REPORT INFORMATION
  Report Type: Spontaneous
  Country: US (occurrence: US)
  Receive Date: 20230130
  Receipt Date: 20230210
  Transmission Date: 20230417
  Serious: Yes (Hospitalization, Other)
  Sender: FDA-Public Use
  Company Number: US-BAXTER-2023BAX011257

PATIENT
  Age: 52 Year
  Sex: Male
  Weight: 73 kg

DRUGS (2)
  1. EXTRANEAL [Suspect]
     Active Substance: CALCIUM CHLORIDE\ICODEXTRIN\MAGNESIUM CHLORIDE\SODIUM CHLORIDE\SODIUM LACTATE
     Indication: End stage renal disease
     Dosage: LAST FILL 2000 ML (NO DAYTIME EXCHANGE)
     Route: 033
     Dates: start: 2022
  2. DELFLEX [Suspect]
     Active Substance: CALCIUM CHLORIDE\DEXTROSE\MAGNESIUM CHLORIDE\SODIUM CHLORIDE\SODIUM LACTATE
     Indication: Peritoneal dialysis
     Dosage: 2.5%,2500 ML FOR 5 CYCLES
     Route: 033

REACTIONS (7)
  - Azotaemia [Recovered/Resolved]
  - Cough [Recovering/Resolving]
  - Choking [Unknown]
  - Gastrointestinal haemorrhage [Recovered/Resolved]
  - Peritoneal dialysis complication [Unknown]
  - Asthenia [Recovered/Resolved]
  - Dyspnoea [Recovering/Resolving]

NARRATIVE: CASE EVENT DATE: 20230115
